FAERS Safety Report 18191671 (Version 5)
Quarter: 2020Q3

REPORT INFORMATION
  Report Type: Spontaneous
  Country: JP (occurrence: JP)
  Receive Date: 20200825
  Receipt Date: 20200929
  Transmission Date: 20201103
  Serious: Yes (Hospitalization, Other)
  Sender: FDA-Public Use
  Company Number: JP-PFIZER INC-2020326888

PATIENT
  Age: 60 Year
  Sex: Male
  Weight: 54.2 kg

DRUGS (6)
  1. CEFAZOLIN SODIUM. [Suspect]
     Active Substance: CEFAZOLIN SODIUM
     Dosage: 1.0 G, QD
     Route: 065
  2. IMIPENEM AND CILASTATIN [Concomitant]
     Active Substance: CILASTATIN SODIUM\IMIPENEM
     Indication: MUSCLE ABSCESS
     Dosage: 0.5 G, DAILY
  3. MEROPENEM. [Suspect]
     Active Substance: MEROPENEM
     Indication: MUSCLE ABSCESS
     Dosage: 1.0 G, QD
     Route: 041
  4. ATORVASTATIN [ATORVASTATIN CALCIUM TRIHYDRATE] [Concomitant]
     Active Substance: ATORVASTATIN CALCIUM TRIHYDRATE
     Dosage: 10 MG, DAILY
     Route: 048
  5. CEFAZOLIN SODIUM. [Suspect]
     Active Substance: CEFAZOLIN SODIUM
     Indication: MUSCLE ABSCESS
     Dosage: 2 G, 1X/DAY
     Route: 065
  6. CANDESARTAN [CANDESARTAN CILEXETIL] [Concomitant]
     Active Substance: CANDESARTAN CILEXETIL
     Dosage: 4 MG, DAILY
     Route: 048

REACTIONS (2)
  - Tubulointerstitial nephritis [Recovered/Resolved]
  - Nephropathy toxic [Recovered/Resolved]
